FAERS Safety Report 5599144-0 (Version None)
Quarter: 2008Q1

REPORT INFORMATION
  Report Type: 
  Country: None (occurrence: None)
  Receive Date: 20080122
  Receipt Date: 20080116
  Transmission Date: 20080703
  Serious: Yes (Hospitalization, Other)
  Sender: FDA-Public Use
  Company Number: GB-BOEHRINGER INGELHEIM PHARMACEUTICALS, INC.-2007-DE-06492GD

PATIENT
  Age: 67 Year
  Sex: Male

DRUGS (1)
  1. TIOTROPIUM-BROMIDE [Suspect]
     Indication: CHRONIC OBSTRUCTIVE PULMONARY DISEASE
     Route: 055
     Dates: start: 20031002

REACTIONS (12)
  - BLOOD GLUCOSE INCREASED [None]
  - BUNDLE BRANCH BLOCK LEFT [None]
  - CANDIDIASIS [None]
  - CARDIAC DISORDER [None]
  - CARDIAC FAILURE CONGESTIVE [None]
  - CHRONIC OBSTRUCTIVE PULMONARY DISEASE [None]
  - CONDITION AGGRAVATED [None]
  - HYPERTENSION [None]
  - KLEBSIELLA INFECTION [None]
  - MYOCARDIAL INFARCTION [None]
  - SINUS TACHYCARDIA [None]
  - SPUTUM CULTURE POSITIVE [None]
